FAERS Safety Report 20920158 (Version 1)
Quarter: 2022Q2

REPORT INFORMATION
  Report Type: Spontaneous
  Country: US (occurrence: None)
  Receive Date: 20220606
  Receipt Date: 20220606
  Transmission Date: 20220721
  Serious: No
  Sender: FDA-Public Use
  Company Number: None

PATIENT
  Age: 46 Year
  Sex: Female

DRUGS (1)
  1. HUMIRA [Suspect]
     Active Substance: ADALIMUMAB
     Indication: Ankylosing spondylitis
     Dosage: OTHER FREQUENCY : EVERY14DAYS;?
     Route: 058
     Dates: start: 20220504, end: 20220603

REACTIONS (4)
  - Injection site rash [None]
  - Injection site erythema [None]
  - Injection site pruritus [None]
  - Injection related reaction [None]

NARRATIVE: CASE EVENT DATE: 20220504
